FAERS Safety Report 9234515 (Version 1)
Quarter: 2013Q2

REPORT INFORMATION
  Report Type: Spontaneous
  Country: US (occurrence: US)
  Receive Date: 20130416
  Receipt Date: 20130416
  Transmission Date: 20140414
  Serious: No
  Sender: FDA-Public Use
  Company Number: US-BANPHARM-20120306

PATIENT
  Age: 81 Year
  Sex: Female
  Weight: 61.69 kg

DRUGS (1)
  1. ALEVE LIQUID GELS 220 MG [Suspect]
     Dosage: 1 DF, QD,
     Route: 048
     Dates: start: 201210

REACTIONS (2)
  - Drug ineffective [Unknown]
  - Burn oesophageal [Recovered/Resolved]
